FAERS Safety Report 17878696 (Version 1)
Quarter: 2020Q2

REPORT INFORMATION
  Report Type: Spontaneous
  Country: US (occurrence: US)
  Receive Date: 20200610
  Receipt Date: 20200610
  Transmission Date: 20200714
  Serious: Yes (Other)
  Sender: FDA-Public Use
  Company Number: US-SPECGX-T202000598

PATIENT
  Sex: Male

DRUGS (1)
  1. HYDROCODONE/ACETAMINOPHEN [Suspect]
     Active Substance: ACETAMINOPHEN\HYDROCODONE
     Indication: PAIN
     Dosage: UNK
     Route: 065

REACTIONS (3)
  - Substance use disorder [Unknown]
  - Drug ineffective [Unknown]
  - Drug dependence [Unknown]
